FAERS Safety Report 26120320 (Version 1)
Quarter: 2025Q4

REPORT INFORMATION
  Report Type: Spontaneous
  Country: EU (occurrence: EU)
  Receive Date: 20251204
  Receipt Date: 20251204
  Transmission Date: 20260117
  Serious: Yes (Hospitalization)
  Sender: ALEXION PHARMACEUTICALS
  Company Number: None

PATIENT
  Age: 56 Year
  Sex: Female
  Weight: 85 kg

DRUGS (4)
  1. IMFINZI [Suspect]
     Active Substance: DURVALUMAB
     Indication: Bile duct cancer
     Dosage: 1500 MG Q3W
     Dates: start: 20250509, end: 20251028
  2. GEMCITABINE [Concomitant]
     Active Substance: GEMCITABINE
     Dosage: 1000 MG/MQ G. 1,8 Q3W
     Dates: start: 20250509, end: 20251014
  3. CISPLATIN [Concomitant]
     Active Substance: CISPLATIN
     Dosage: 25 MG/MQ G. 1,8 Q3W
     Dates: start: 20250509, end: 20250915
  4. RIVAROXABAN [Concomitant]
     Active Substance: RIVAROXABAN
     Indication: Medical device site thrombosis

REACTIONS (4)
  - Eyelid ptosis [Recovering/Resolving]
  - Diplopia [Recovering/Resolving]
  - Immune-mediated myositis [Recovered/Resolved]
  - Myocarditis [Recovered/Resolved]

NARRATIVE: CASE EVENT DATE: 20251103
